FAERS Safety Report 6501305-0 (Version None)
Quarter: 2009Q4

REPORT INFORMATION
  Report Type: 
  Country: None (occurrence: None)
  Receive Date: 20091215
  Receipt Date: 20091215
  Transmission Date: 20100525
  Serious: Yes (Hospitalization)
  Sender: FDA-Public Use
  Company Number: None

PATIENT
  Sex: Male
  Weight: 52.3 kg

DRUGS (4)
  1. HEPARIN LOCK-FLUSH [Suspect]
     Indication: INDWELLING CATHETER MANAGEMENT
     Dosage: HEPARIN 100 UNITS/ML 3ML AFTER MEDICATION INTRAVENOUS FLUSH
     Route: 042
     Dates: start: 20091129
  2. ZYVOX [Concomitant]
  3. TOBRAMYCIN [Concomitant]
  4. MAXIPIME [Concomitant]

REACTIONS (7)
  - ARRHYTHMIA [None]
  - DYSPNOEA [None]
  - HEARING IMPAIRED [None]
  - INFUSION RELATED REACTION [None]
  - PALLOR [None]
  - PRODUCT ODOUR ABNORMAL [None]
  - RASH [None]
